FAERS Safety Report 8552962-9 (Version None)
Quarter: 2012Q3

REPORT INFORMATION
  Report Type: 
  Country: None (occurrence: None)
  Receive Date: 20120731
  Receipt Date: 20120717
  Transmission Date: 20120928
  Serious: Yes (Other)
  Sender: FDA-Public Use
  Company Number: SE-MYLANLABS-2012S1009188

PATIENT
  Age: 67 Year
  Sex: Female

DRUGS (4)
  1. TAMOXIFEN CITRATE [Suspect]
     Indication: PRODUCT USED FOR UNKNOWN INDICATION
     Dates: start: 20091001
  2. LOSARTAN POTASSIUM [Concomitant]
     Indication: BLOOD PRESSURE INCREASED
  3. SIMVASTATIN [Concomitant]
     Indication: PRODUCT USED FOR UNKNOWN INDICATION
  4. SALURES [Concomitant]
     Indication: OEDEMA PERIPHERAL

REACTIONS (10)
  - CHILLS [None]
  - FLUID RETENTION [None]
  - HAEMATOCHEZIA [None]
  - EPISTAXIS [None]
  - NAUSEA [None]
  - DECREASED APPETITE [None]
  - OEDEMA PERIPHERAL [None]
  - FEELING ABNORMAL [None]
  - PLATELET DISORDER [None]
  - LIVER INJURY [None]
